FAERS Safety Report 8167705-0 (Version None)
Quarter: 2012Q1

REPORT INFORMATION
  Report Type: 
  Country: None (occurrence: None)
  Receive Date: 20120227
  Receipt Date: 20120217
  Transmission Date: 20120608
  Serious: Yes (Other)
  Sender: FDA-Public Use
  Company Number: AU-JNJFOC-20111008226

PATIENT
  Sex: Female
  Weight: 55 kg

DRUGS (4)
  1. STELARA [Suspect]
     Indication: PSORIASIS
     Route: 058
     Dates: start: 20110917
  2. STELARA [Suspect]
     Route: 058
     Dates: start: 20111209
  3. STELARA [Suspect]
     Route: 058
     Dates: start: 20110720
  4. STELARA [Suspect]
     Route: 058
     Dates: start: 20110820

REACTIONS (2)
  - INAPPROPRIATE SCHEDULE OF DRUG ADMINISTRATION [None]
  - ARTHRITIS [None]
